FAERS Safety Report 25621113 (Version 2)
Quarter: 2025Q3

REPORT INFORMATION
  Report Type: Spontaneous
  Country: GB (occurrence: GB)
  Receive Date: 20250730
  Receipt Date: 20250804
  Transmission Date: 20251021
  Serious: Yes (Death)
  Sender: ABBVIE
  Company Number: GB-ABBVIE-6393245

PATIENT
  Age: 76 Year
  Sex: Male

DRUGS (3)
  1. VENETOCLAX [Suspect]
     Active Substance: VENETOCLAX
     Indication: Acute myeloid leukaemia
     Route: 048
  2. AZACITIDINE [Suspect]
     Active Substance: AZACITIDINE
     Indication: Acute myeloid leukaemia
     Route: 065
  3. RASBURICASE [Concomitant]
     Active Substance: RASBURICASE
     Indication: Acute myeloid leukaemia
     Route: 065

REACTIONS (1)
  - Tumour lysis syndrome [Fatal]
